FAERS Safety Report 19745983 (Version 3)
Quarter: 2023Q2

REPORT INFORMATION
  Report Type: Other
  Country: US (occurrence: None)
  Receive Date: 20210825
  Receipt Date: 20230519
  Transmission Date: 20230722
  Serious: Yes (Hospitalization)
  Sender: FDA-Public Use
  Company Number: US-ROCHE-2894831

PATIENT
  Age: 60 Year
  Sex: Male
  Weight: 123.03 kg

DRUGS (9)
  1. RITUXAN [Suspect]
     Active Substance: RITUXIMAB
     Indication: Nephritic syndrome
     Dosage: DATE OF TREATMENT: 24/AUG/2022
     Route: 042
  2. COREG [Concomitant]
     Active Substance: CARVEDILOL
  3. LOSARTAN [Concomitant]
     Active Substance: LOSARTAN
  4. LASIX [Concomitant]
     Active Substance: FUROSEMIDE
  5. ASPIRIN [Concomitant]
     Active Substance: ASPIRIN
  6. ESCITALOPRAM OXALATE [Concomitant]
     Active Substance: ESCITALOPRAM OXALATE
  7. PANTOPRAZOLE [Concomitant]
     Active Substance: PANTOPRAZOLE
  8. POTASSIUM CHLORIDE [Concomitant]
     Active Substance: POTASSIUM CHLORIDE
  9. CARVEDILOL [Concomitant]
     Active Substance: CARVEDILOL

REACTIONS (5)
  - Diarrhoea [Unknown]
  - Off label use [Unknown]
  - Hypertension [Unknown]
  - Obesity [Unknown]
  - Sleep apnoea syndrome [Unknown]
